FAERS Safety Report 18537738 (Version 1)
Quarter: 2020Q4

REPORT INFORMATION
  Report Type: Spontaneous
  Country: CN (occurrence: CN)
  Receive Date: 20201123
  Receipt Date: 20201123
  Transmission Date: 20210114
  Serious: Yes (Other)
  Sender: FDA-Public Use
  Company Number: CN-ANIPHARMA-2020-CN-000339

PATIENT
  Age: 47 Year
  Sex: Female

DRUGS (4)
  1. OXAZEPAM. [Concomitant]
     Active Substance: OXAZEPAM
     Dosage: 30 MG AT BEDTIME
  2. PROPRANOLOL EXTENDED RELEASE CAPSULES (NON-SPECIFIC) [Suspect]
     Active Substance: PROPRANOLOL HYDROCHLORIDE
     Indication: AKATHISIA
     Dosage: 10 MG TWICE DAILY
  3. OLANZAPINE. [Suspect]
     Active Substance: OLANZAPINE
     Indication: SCHIZOPHRENIA
     Dosage: 10 MG TWICE DAILY
  4. BENZHEXOL [Concomitant]
     Active Substance: TRIHEXYPHENIDYL
     Dosage: 2 MG TWICE DAILY

REACTIONS (2)
  - Somnambulism [Unknown]
  - Drug interaction [Unknown]
